FAERS Safety Report 20491694 (Version 1)
Quarter: 2022Q1

REPORT INFORMATION
  Report Type: Spontaneous
  Country: US (occurrence: US)
  Receive Date: 20220218
  Receipt Date: 20220218
  Transmission Date: 20220423
  Serious: No
  Sender: FDA-Public Use
  Company Number: US-Genus_Lifesciences-USA-POI0580202100110

PATIENT
  Age: 65 Year
  Sex: Female
  Weight: 59.87 kg

DRUGS (10)
  1. POTASSIUM CHLORIDE [Suspect]
     Active Substance: POTASSIUM CHLORIDE
     Indication: Hypokalaemia
     Dosage: 4 TABLE SPOON WITH 1 OUNCE CUP OF WATER IN MORNING AND EVENING (FOR YEARS).
     Route: 048
  2. PFIZER-BIONTECH COVID-19 VACCINE [Suspect]
     Active Substance: TOZINAMERAN
     Indication: Immunisation
     Dosage: RIGHT ARM.
     Route: 030
     Dates: start: 20210128, end: 20210128
  3. DEVICE [Suspect]
     Active Substance: DEVICE
     Dates: start: 20210105, end: 20210105
  4. DEVICE [Suspect]
     Active Substance: DEVICE
     Indication: Breast scan
     Dates: start: 20210110, end: 20210110
  5. VITAMINS AND MINERALS [Concomitant]
     Indication: Nutritional supplementation
  6. VALACYCLOVIR HYDROCHLORIDE [Concomitant]
     Active Substance: VALACYCLOVIR HYDROCHLORIDE
     Indication: Herpes virus infection
  7. LORAZEPAM [Concomitant]
     Active Substance: LORAZEPAM
     Indication: Sleep disorder
  8. ARMOUR THYROID [Concomitant]
     Active Substance: THYROID, PORCINE
     Indication: Product used for unknown indication
     Dosage: 60 AND 90 ALTERNATING DOSES.
  9. BENZONATATES [Concomitant]
     Indication: Product used for unknown indication
  10. ASPIRIN [Concomitant]
     Active Substance: ASPIRIN
     Indication: Coronary artery disease
     Dosage: 60 AND 90 ALTERNATING DOSES.

REACTIONS (2)
  - Rash pruritic [Recovered/Resolved]
  - Rash morbilliform [Recovered/Resolved]

NARRATIVE: CASE EVENT DATE: 20210130
